FAERS Safety Report 7314262-4 (Version None)
Quarter: 2011Q1

REPORT INFORMATION
  Report Type: 
  Country: None (occurrence: None)
  Receive Date: 20110225
  Receipt Date: 20100709
  Transmission Date: 20110831
  Serious: No
  Sender: FDA-Public Use
  Company Number: US-MYLANLABS-2010S1011379

PATIENT
  Age: 20 Year
  Sex: Male

DRUGS (4)
  1. AMNESTEEM [Suspect]
     Indication: HIDRADENITIS
     Route: 048
     Dates: start: 20100527, end: 20100609
  2. SEROQUEL [Concomitant]
  3. CLONAZEPAM [Concomitant]
  4. DEPAKOTE [Concomitant]

REACTIONS (1)
  - MOOD SWINGS [None]
